FAERS Safety Report 20030682 (Version 13)
Quarter: 2025Q2

REPORT INFORMATION
  Report Type: Spontaneous
  Country: US (occurrence: US)
  Receive Date: 20211103
  Receipt Date: 20250530
  Transmission Date: 20250716
  Serious: No
  Sender: DAIICHI
  Company Number: US-DSJP-DSU-2021-136377AA

PATIENT
  Age: 55 Year
  Sex: Male

DRUGS (3)
  1. TURALIO [Suspect]
     Active Substance: PEXIDARTINIB HYDROCHLORIDE
     Indication: Giant cell tumour of tendon sheath
     Dosage: 200 MG, QD
     Route: 048
     Dates: start: 20211002, end: 20230118
  2. TURALIO [Suspect]
     Active Substance: PEXIDARTINIB HYDROCHLORIDE
     Dosage: 125 MG, QD
     Route: 048
     Dates: start: 20230223
  3. TURALIO [Suspect]
     Active Substance: PEXIDARTINIB HYDROCHLORIDE
     Dosage: 125 MG, QD (1 CAPSULE BY MOUTH ONCE DAILY)
     Route: 048
     Dates: start: 20211002

REACTIONS (11)
  - Skin reaction [Recovered/Resolved]
  - Gastrointestinal disorder [Recovered/Resolved]
  - Burning sensation [Recovered/Resolved]
  - Pruritus [Recovered/Resolved]
  - Pruritus [Recovered/Resolved]
  - COVID-19 [Recovered/Resolved]
  - Meniscus injury [Recovered/Resolved]
  - Product use issue [Not Recovered/Not Resolved]
  - Product dose omission issue [Not Recovered/Not Resolved]
  - Product dose omission issue [Not Recovered/Not Resolved]
  - Product dose omission issue [Not Recovered/Not Resolved]

NARRATIVE: CASE EVENT DATE: 20211002
